FAERS Safety Report 15043008 (Version 1)
Quarter: 2018Q2

REPORT INFORMATION
  Report Type: Report from Study
  Country: None (occurrence: US)
  Receive Date: 20180621
  Receipt Date: 20180621
  Transmission Date: 20180711
  Serious: Yes (Hospitalization)
  Sender: FDA-Public Use
  Company Number: US-ABBVIE-17K-163-2110076-00

PATIENT
  Age: 57 Year
  Sex: Female

DRUGS (1)
  1. HUMIRA [Suspect]
     Active Substance: ADALIMUMAB
     Indication: CROHN^S DISEASE
     Route: 058
     Dates: end: 20170718

REACTIONS (3)
  - Large intestinal stenosis [Recovering/Resolving]
  - Intestinal dilatation [Recovering/Resolving]
  - Small intestine operation [Unknown]

NARRATIVE: CASE EVENT DATE: 201706
